FAERS Safety Report 12793788 (Version 1)
Quarter: 2016Q3

REPORT INFORMATION
  Report Type: Spontaneous
  Country: US (occurrence: US)
  Receive Date: 20160929
  Receipt Date: 20160929
  Transmission Date: 20161109
  Serious: No
  Sender: FDA-Public Use
  Company Number: US-JAZZ-2016-US-011860

PATIENT
  Age: 23 Year
  Sex: Male
  Weight: 105.21 kg

DRUGS (8)
  1. XYREM [Suspect]
     Active Substance: SODIUM OXYBATE
     Indication: CATAPLEXY
  2. MULTIVITAMINS [Concomitant]
     Active Substance: VITAMINS
  3. TURMERIC [Concomitant]
     Active Substance: TURMERIC
  4. XYREM [Suspect]
     Active Substance: SODIUM OXYBATE
     Indication: NARCOLEPSY
     Dosage: 2.5 G, BID
     Route: 048
     Dates: start: 20160621
  5. COLACE [Concomitant]
     Active Substance: DOCUSATE SODIUM
  6. MAGNESIUM OXIDE. [Concomitant]
     Active Substance: MAGNESIUM OXIDE
  7. MODAFINIL. [Concomitant]
     Active Substance: MODAFINIL
     Indication: NARCOLEPSY
  8. PROVIGIL [Concomitant]
     Active Substance: MODAFINIL

REACTIONS (2)
  - Energy increased [Not Recovered/Not Resolved]
  - Anxiety [Not Recovered/Not Resolved]

NARRATIVE: CASE EVENT DATE: 201606
